FAERS Safety Report 8574593-7 (Version None)
Quarter: 2012Q3

REPORT INFORMATION
  Report Type: 
  Country: None (occurrence: None)
  Receive Date: 20120806
  Receipt Date: 20120725
  Transmission Date: 20120928
  Serious: Yes (Hospitalization)
  Sender: FDA-Public Use
  Company Number: JP-UCBSA-060861

PATIENT
  Age: 84 Year
  Sex: Male

DRUGS (2)
  1. PHENOBARBITAL TAB [Concomitant]
     Dosage: UNKNOWN DOSE
  2. KEPPRA [Suspect]
     Route: 048

REACTIONS (2)
  - MYELODYSPLASTIC SYNDROME [None]
  - PANCYTOPENIA [None]
